FAERS Safety Report 8296391-4 (Version None)
Quarter: 2012Q2

REPORT INFORMATION
  Report Type: 
  Country: None (occurrence: None)
  Receive Date: 20120418
  Receipt Date: 20120418
  Transmission Date: 20120825
  Serious: Yes (Hospitalization)
  Sender: FDA-Public Use
  Company Number: CN-B.I. PHARMACEUTICALS,INC./RIDGEFIELD-2012-CS-00112CS

PATIENT
  Age: 58 Year
  Sex: Female

DRUGS (1)
  1. ATROVENT [Suspect]
     Indication: ASTHMA
     Route: 055
     Dates: end: 20120126

REACTIONS (1)
  - ASTHMA [None]
